FAERS Safety Report 9637004 (Version 3)
Quarter: 2013Q4

REPORT INFORMATION
  Report Type: Spontaneous
  Country: US (occurrence: US)
  Receive Date: 20131022
  Receipt Date: 20131104
  Transmission Date: 20140711
  Serious: Yes (Death, Hospitalization)
  Sender: FDA-Public Use
  Company Number: US-BAXTER-2013BAX040873

PATIENT
  Age: 66 Year
  Sex: Male

DRUGS (2)
  1. DIANEAL PD2 [Suspect]
     Indication: RENAL FAILURE CHRONIC
     Route: 033
     Dates: start: 2012, end: 201310
  2. DIANEAL PD2 [Suspect]
     Route: 033
     Dates: start: 2012, end: 201309

REACTIONS (9)
  - Death [Fatal]
  - Protein total increased [Recovering/Resolving]
  - Hyperproteinaemia [Recovering/Resolving]
  - Bone lesion [Recovering/Resolving]
  - Arthralgia [Unknown]
  - Arthralgia [Unknown]
  - Colitis [Recovering/Resolving]
  - Abdominal pain [Unknown]
  - Vomiting [Unknown]
